FAERS Safety Report 14301206 (Version 1)
Quarter: 2017Q4

REPORT INFORMATION
  Report Type: Spontaneous
  Country: DE (occurrence: DE)
  Receive Date: 20171219
  Receipt Date: 20171219
  Transmission Date: 20180321
  Serious: Yes (Other)
  Sender: FDA-Public Use
  Company Number: DE-GUERBET-DE-20170153

PATIENT
  Age: 88 Year
  Sex: Female

DRUGS (1)
  1. LIPIODOL [Suspect]
     Active Substance: ETHIODIZED OIL
     Indication: SPINAL MYELOGRAM
     Route: 065

REACTIONS (7)
  - Disorientation [Recovering/Resolving]
  - Cerebral atrophy [Unknown]
  - Product use in unapproved indication [Unknown]
  - Disturbance in attention [Recovering/Resolving]
  - Delirium [Recovering/Resolving]
  - Contrast media deposition [Unknown]
  - Dementia [Unknown]
